FAERS Safety Report 5576413-1 (Version None)
Quarter: 2007Q4

REPORT INFORMATION
  Report Type: 
  Country: None (occurrence: None)
  Receive Date: 20071228
  Receipt Date: 20071217
  Transmission Date: 20080405
  Serious: Yes (Death)
  Sender: FDA-Public Use
  Company Number: DE-ASTRAZENECA-2007PK01251

PATIENT
  Age: 58 Year
  Sex: Male

DRUGS (13)
  1. SEROQUEL [Suspect]
     Dosage: STARTED ALREADY BEFORE HOSPITAL ADMINISTRATION
     Route: 048
     Dates: end: 20070330
  2. NEXIUM [Interacting]
     Dosage: IT SERVICE DESK, BANGALORESTARTED BEFORE HOSPITAL ADMINISTRATION
     Route: 048
     Dates: end: 20070330
  3. HALDOL [Interacting]
     Dosage: STARTED ALREADY BEFORE HOSPITAL ADMINISTRATION
     Route: 048
     Dates: end: 20070327
  4. HALDOL [Interacting]
     Route: 048
     Dates: start: 20070328, end: 20070330
  5. DIPIPERON [Suspect]
     Dosage: STARTED ALREADY BEFORE HOSPITAL ADMINISTRATION
     Route: 048
     Dates: end: 20070330
  6. CIPRO [Interacting]
     Route: 048
     Dates: start: 20070329, end: 20070330
  7. METOHEXAL [Interacting]
     Dosage: STARTED BEFORE HOSPITAL ADMINISTRATION
     Route: 048
     Dates: end: 20070330
  8. CITALOPRAM HYDROBROMIDE [Concomitant]
     Dosage: STARTED ALREADY BEFORE HOSPITAL ADMINISTRATION
     Route: 048
     Dates: end: 20070330
  9. TAVOR [Concomitant]
     Dosage: STARTED ALREADY BEFORE HOSPITAL ADMINISTRATION
     Route: 048
     Dates: end: 20070330
  10. FLUNITRAZEPAM [Concomitant]
     Dosage: STARTED ALREADY BEFORE HOSPITAL ADMINISTRATION
     Route: 048
     Dates: end: 20070330
  11. SALOFALK [Concomitant]
     Dosage: STARTED ALREADY BEFORE HOSPITAL ADMINISTRATION
     Route: 048
     Dates: end: 20070330
  12. NOVALGIN [Concomitant]
     Dosage: STARTED ALREADY BEFORE HOSPITAL ADMINISTRATION
     Route: 048
     Dates: end: 20070330
  13. FRAGMIN [Concomitant]
     Dosage: STARTED ALREADY BEFORE HOSPITAL ADMINISTRATION
     Route: 058
     Dates: start: 20070323, end: 20070330

REACTIONS (2)
  - DEATH [None]
  - DRUG INTERACTION [None]
